FAERS Safety Report 11242709 (Version 15)
Quarter: 2018Q3

REPORT INFORMATION
  Report Type: Report from Study
  Country: CN (occurrence: CN)
  Receive Date: 20150707
  Receipt Date: 20180712
  Transmission Date: 20181010
  Serious: Yes (Hospitalization)
  Sender: FDA-Public Use
  Company Number: PHHO2015CN011208

PATIENT
  Age: 62 Year
  Sex: Female
  Weight: 58.6 kg

DRUGS (8)
  1. COMPARATOR TRASTUZUMAB [Suspect]
     Active Substance: TRASTUZUMAB
     Dosage: 110 MG, UNK
     Route: 042
     Dates: start: 20150716
  2. ZOMETA [Suspect]
     Active Substance: ZOLEDRONIC ACID
     Indication: METASTASES TO BONE
     Dosage: 4 MG, QMO (EVERY ONE MONTH)
     Route: 042
     Dates: start: 20110326, end: 20140805
  3. COMPARATOR PACLITAXEL [Suspect]
     Active Substance: PACLITAXEL
     Indication: BREAST CANCER METASTATIC
     Dosage: 130 MG, UNK
     Route: 042
     Dates: start: 20110414, end: 20120323
  4. METRONIDAZOLE. [Concomitant]
     Active Substance: METRONIDAZOLE
     Indication: OSTEONECROSIS OF JAW
     Dosage: 500 MG, QD
     Route: 042
     Dates: start: 20150705, end: 20150709
  5. COMPARATOR TRASTUZUMAB [Suspect]
     Active Substance: TRASTUZUMAB
     Indication: BREAST CANCER METASTATIC
     Dosage: 110 MG, UNK
     Route: 042
     Dates: start: 20110414, end: 20150625
  6. CEFACLOR. [Concomitant]
     Active Substance: CEFACLOR
     Indication: GINGIVITIS
     Dosage: 2 DF, TID (CAPSULE)
     Route: 048
     Dates: start: 20141106, end: 20150629
  7. PLACEBO [Suspect]
     Active Substance: UNSPECIFIED INGREDIENT
     Indication: BREAST CANCER METASTATIC
     Dosage: UNK
     Route: 048
     Dates: start: 20110414
  8. METRONIDAZOLE. [Concomitant]
     Active Substance: METRONIDAZOLE
     Indication: GINGIVITIS
     Dosage: 2 DF, BID (CAPSULE)
     Route: 048
     Dates: start: 20141106, end: 20150629

REACTIONS (1)
  - Osteonecrosis of jaw [Recovering/Resolving]

NARRATIVE: CASE EVENT DATE: 20150630
